FAERS Safety Report 22625023 (Version 1)
Quarter: 2023Q2

REPORT INFORMATION
  Report Type: Spontaneous
  Country: US (occurrence: None)
  Receive Date: 20230620
  Receipt Date: 20230620
  Transmission Date: 20230721
  Serious: Yes (unspecified)
  Sender: FDA-Public Use
  Company Number: None

PATIENT
  Age: 76 Year
  Sex: Female
  Weight: 67.05 kg

DRUGS (3)
  1. FLUORESCEIN [Suspect]
     Active Substance: FLUORESCEIN
     Indication: Angiogram retina
     Dates: start: 20230613, end: 20230613
  2. Avenova spray [Concomitant]
  3. Ivizia eye drops [Concomitant]

REACTIONS (12)
  - Malaise [None]
  - Confusional state [None]
  - Feeling abnormal [None]
  - Headache [None]
  - Chest discomfort [None]
  - Myocardial infarction [None]
  - Lip swelling [None]
  - Goitre [None]
  - Pharyngeal swelling [None]
  - Oropharyngeal pain [None]
  - Tremor [None]
  - Hot flush [None]

NARRATIVE: CASE EVENT DATE: 20230613
